FAERS Safety Report 8247994-4 (Version None)
Quarter: 2012Q1

REPORT INFORMATION
  Report Type: 
  Country: None (occurrence: None)
  Receive Date: 20120330
  Receipt Date: 20120319
  Transmission Date: 20120608
  Serious: No
  Sender: FDA-Public Use
  Company Number: BR-BIOGENIDEC-2011BI002133

PATIENT
  Age: 32 Year
  Sex: Female
  Weight: 96 kg

DRUGS (2)
  1. AVONEX [Suspect]
     Indication: PRODUCT USED FOR UNKNOWN INDICATION
     Route: 030
     Dates: start: 20080201, end: 20110106
  2. FOLIC ACID [Concomitant]
     Indication: PREGNANCY
     Dates: start: 20110118

REACTIONS (1)
  - NO ADVERSE EVENT [None]
